FAERS Safety Report 7867337-5 (Version None)
Quarter: 2011Q4

REPORT INFORMATION
  Report Type: 
  Country: None (occurrence: None)
  Receive Date: 20111028
  Receipt Date: 20111024
  Transmission Date: 20120403
  Serious: Yes (Hospitalization, Other)
  Sender: FDA-Public Use
  Company Number: US-PFIZER INC-2011239317

PATIENT
  Sex: Male
  Weight: 122 kg

DRUGS (4)
  1. IBUPROFEN (ADVIL) [Suspect]
     Indication: MYALGIA
     Dosage: 1 TABLET EVERY 6 HOURS
     Route: 048
     Dates: start: 20110901, end: 20110101
  2. PROTONIX [Interacting]
     Indication: GASTROOESOPHAGEAL REFLUX DISEASE
     Dosage: 40 MG, UNK
     Route: 065
  3. IBUPROFEN (ADVIL) [Interacting]
     Indication: BACK PAIN
     Dosage: UNK
  4. METFORMIN [Concomitant]
     Indication: DIABETES MELLITUS
     Dosage: 800 MG, UNK
     Route: 065

REACTIONS (4)
  - GASTRIC ULCER [None]
  - HYPERSENSITIVITY [None]
  - DRUG INTERACTION [None]
  - GASTRIC HAEMORRHAGE [None]
